FAERS Safety Report 5062809-3 (Version None)
Quarter: 2006Q3

REPORT INFORMATION
  Report Type: 
  Country: None (occurrence: None)
  Receive Date: 20060724
  Receipt Date: 20060713
  Transmission Date: 20061208
  Serious: Yes (Life-Threatening)
  Sender: FDA-Public Use
  Company Number: 2006083544

PATIENT
  Age: 90 Year
  Sex: Female
  Weight: 50 kg

DRUGS (6)
  1. ALDACTONE [Suspect]
     Indication: OEDEMA PERIPHERAL
     Dosage: 25 MG (1 D), ORAL
     Route: 048
     Dates: start: 20060628, end: 20060628
  2. CONIEL (BENIDIPINE HYDROCHLORIDE) [Concomitant]
  3. KOLANTYL (ALUMINIUM, HYDROXIDE, DICYCLOVERINE HYDROCHLORIDE, MAGNESIUM [Concomitant]
  4. KIMOTAB (BROMELAINS, TRYPSIN) [Concomitant]
  5. UBIDECARENONE (UBIDECARENONE) [Concomitant]
  6. ALFAROL (ALFACALCIDOL) [Concomitant]

REACTIONS (4)
  - ARRHYTHMIA [None]
  - BLOOD PRESSURE INCREASED [None]
  - SUPRAVENTRICULAR EXTRASYSTOLES [None]
  - TRANSIENT ISCHAEMIC ATTACK [None]
